FAERS Safety Report 21528821 (Version 2)
Quarter: 2022Q4

REPORT INFORMATION
  Report Type: Spontaneous
  Country: US (occurrence: US)
  Receive Date: 20221031
  Receipt Date: 20221123
  Transmission Date: 20230113
  Serious: Yes (Other)
  Sender: FDA-Public Use
  Company Number: US-BAYER-2022A147322

PATIENT
  Age: 33 Year
  Sex: Female
  Weight: 186 kg

DRUGS (1)
  1. MIRENA [Suspect]
     Active Substance: LEVONORGESTREL
     Indication: Contraception
     Dosage: 20?G/DAY
     Route: 015
     Dates: start: 20221012, end: 20221012

REACTIONS (5)
  - Uterine perforation [Recovered/Resolved]
  - Complication of device insertion [None]
  - Embedded device [None]
  - Uterine malposition [Recovered/Resolved]
  - Abdominal pain lower [None]

NARRATIVE: CASE EVENT DATE: 20221012
